FAERS Safety Report 14182534 (Version 1)
Quarter: 2017Q4

REPORT INFORMATION
  Report Type: Spontaneous
  Country: US (occurrence: US)
  Receive Date: 20171113
  Receipt Date: 20171113
  Transmission Date: 20180321
  Serious: No
  Sender: FDA-Public Use
  Company Number: US-PFIZER INC-2017484137

PATIENT
  Age: 67 Year
  Weight: 59.87 kg

DRUGS (1)
  1. CHANTIX [Suspect]
     Active Substance: VARENICLINE TARTRATE
     Indication: SMOKING CESSATION THERAPY
     Dosage: 1 MG, 2X/DAY
     Route: 048
     Dates: start: 201706, end: 201707

REACTIONS (4)
  - Vertigo [Unknown]
  - Malaise [Unknown]
  - Nausea [Recovered/Resolved]
  - Pancreatic cyst [Unknown]

NARRATIVE: CASE EVENT DATE: 2017
